FAERS Safety Report 20040820 (Version 1)
Quarter: 2021Q4

REPORT INFORMATION
  Report Type: Spontaneous
  Country: ES (occurrence: ES)
  Receive Date: 20211107
  Receipt Date: 20211107
  Transmission Date: 20220303
  Serious: Yes (Life-Threatening, Other)
  Sender: FDA-Public Use
  Company Number: ES-AEMPS-1034170

PATIENT
  Age: 78 Year
  Sex: Female

DRUGS (11)
  1. AZITHROMYCIN [Suspect]
     Active Substance: AZITHROMYCIN
     Indication: Infection
     Dosage: UNK (COMP C/24 H)
     Route: 048
     Dates: start: 20211004
  2. PROLIA [Concomitant]
     Active Substance: DENOSUMAB
     Indication: Osteoporosis
     Dosage: 60 MILLIGRAM
     Route: 058
     Dates: start: 20150911
  3. FUROSEMIDE [Concomitant]
     Active Substance: FUROSEMIDE
     Indication: Atrial fibrillation
     Dosage: 40 MILLIGRAM (A-DE )
     Route: 048
     Dates: start: 20201218
  4. TRELEGY ELLIPTA [Concomitant]
     Active Substance: FLUTICASONE FUROATE\UMECLIDINIUM BROMIDE\VILANTEROL TRIFENATATE
     Indication: Asthma
     Dosage: UNK (1.0 PUFF C/24 H)
     Route: 050
     Dates: start: 20210515
  5. LEVOTHYROXINE SODIUM [Concomitant]
     Active Substance: LEVOTHYROXINE SODIUM
     Indication: Hypothyroidism
     Dosage: UNK (125.0 MCG A-DE)
     Route: 048
     Dates: start: 20200904
  6. PLAVIX [Concomitant]
     Active Substance: CLOPIDOGREL BISULFATE
     Indication: Atrial fibrillation
     Dosage: 75 MILLIGRAM (DE)
     Route: 048
     Dates: start: 20210626
  7. LORAZEPAM [Concomitant]
     Active Substance: LORAZEPAM
     Indication: Insomnia
     Dosage: 1 MILLIGRAM ( C/24 H NOC)
     Route: 048
     Dates: start: 20150723
  8. PANTOPRAZOL CINFA [Concomitant]
     Indication: Dyspepsia
     Dosage: 40 MILLIGRAM ( DE)
     Route: 048
     Dates: start: 20200904
  9. CHOLECALCIFEROL [Concomitant]
     Active Substance: CHOLECALCIFEROL
     Indication: Vitamin D deficiency
     Dosage: 25000 INTERNATIONAL UNIT
     Route: 048
     Dates: start: 20210218
  10. BUPRENORPHINE [Concomitant]
     Active Substance: BUPRENORPHINE
     Indication: Spinal osteoarthritis
     Dosage: UNK (1.0 PATCH C / 72 HOURS)
     Route: 065
     Dates: start: 20210226
  11. ATENOLOL CINFA [Concomitant]
     Indication: Spinal osteoarthritis
     Dosage: UNK (MG IRREGULAR)
     Route: 048
     Dates: start: 20200904

REACTIONS (1)
  - Anaphylactic shock [Recovered/Resolved with Sequelae]

NARRATIVE: CASE EVENT DATE: 20211004
